FAERS Safety Report 8482024-0 (Version None)
Quarter: 2012Q3

REPORT INFORMATION
  Report Type: 
  Country: None (occurrence: None)
  Receive Date: 20120702
  Receipt Date: 20120627
  Transmission Date: 20120928
  Serious: Yes (Hospitalization, Other)
  Sender: FDA-Public Use
  Company Number: PHHY2012MX056256

PATIENT
  Sex: Female

DRUGS (4)
  1. VASCULFLOW [Concomitant]
     Dosage: 1 DF, BID
  2. ARCOXIA [Concomitant]
     Indication: PAIN
     Dosage: 1 DF, QD
  3. MISSIL [Concomitant]
     Indication: DIURETIC THERAPY
     Dosage: 1 DF, QD
  4. DIOVAN [Suspect]
     Indication: HYPERTENSION
     Dosage: 320 MG, DAILY

REACTIONS (3)
  - LYMPHANGITIS [None]
  - OEDEMA PERIPHERAL [None]
  - VARICOSE VEIN [None]
